FAERS Safety Report 13064511 (Version 2)
Quarter: 2017Q1

REPORT INFORMATION
  Report Type: Spontaneous
  Country: IL (occurrence: IL)
  Receive Date: 20161227
  Receipt Date: 20170201
  Transmission Date: 20170428
  Serious: Yes (Other)
  Sender: FDA-Public Use
  Company Number: IL-BIOVITRUM-2016IL1101

PATIENT
  Age: 37 Year
  Sex: Male

DRUGS (2)
  1. KINERET [Suspect]
     Active Substance: ANAKINRA
     Indication: FAMILIAL MEDITERRANEAN FEVER
     Dates: start: 2015
  2. COLCHICINE. [Concomitant]
     Active Substance: COLCHICINE

REACTIONS (4)
  - Back pain [Unknown]
  - Off label use [Not Recovered/Not Resolved]
  - Rash [Unknown]
  - Lupus-like syndrome [Unknown]

NARRATIVE: CASE EVENT DATE: 2015
